FAERS Safety Report 17995251 (Version 7)
Quarter: 2020Q4

REPORT INFORMATION
  Report Type: Report from Study
  Country: ES (occurrence: ES)
  Receive Date: 20200708
  Receipt Date: 20201214
  Transmission Date: 20210113
  Serious: Yes (Death, Hospitalization)
  Sender: FDA-Public Use
  Company Number: ES-EXELIXIS-XL18420030939

PATIENT
  Age: 82 Year
  Sex: Female
  Weight: 39.2 kg

DRUGS (13)
  1. FAMOTIDINE. [Concomitant]
     Active Substance: FAMOTIDINE
  2. XL184 [Suspect]
     Active Substance: CABOZANTINIB
     Indication: HEPATOCELLULAR CARCINOMA
     Dosage: 40 MG, QD
     Route: 048
     Dates: start: 20191023
  3. PARACETAMOL [Concomitant]
     Active Substance: ACETAMINOPHEN
  4. VILDAGLIPTINA [Concomitant]
     Active Substance: VILDAGLIPTIN
  5. HIDROFEROL [Concomitant]
     Active Substance: CALCIFEDIOL
  6. MUPIROCINE [Concomitant]
     Active Substance: MUPIROCIN
  7. LORMETAZEPAM [Concomitant]
     Active Substance: LORMETAZEPAM
  8. METFORMINE [Concomitant]
     Active Substance: METFORMIN HYDROCHLORIDE
  9. ENOXAPARIN [Concomitant]
     Active Substance: ENOXAPARIN
  10. EUTIROX [Concomitant]
     Active Substance: LEVOTHYROXINE SODIUM
  11. ATEZOLIZUMAB. [Suspect]
     Active Substance: ATEZOLIZUMAB
     Indication: HEPATOCELLULAR CARCINOMA
     Dosage: 1200 MG, Q3WEEKS
     Route: 042
     Dates: start: 20191023
  12. PHOSPHATE [Concomitant]
     Active Substance: UNSPECIFIED INGREDIENT
  13. MUCOSITIS SOLUTION [Concomitant]

REACTIONS (1)
  - Pneumonia [Fatal]

NARRATIVE: CASE EVENT DATE: 20200626
